FAERS Safety Report 14161031 (Version 1)
Quarter: 2017Q4

REPORT INFORMATION
  Report Type: Spontaneous
  Country: FI (occurrence: FI)
  Receive Date: 20171106
  Receipt Date: 20171106
  Transmission Date: 20180321
  Serious: Yes (Other)
  Sender: FDA-Public Use
  Company Number: FI-BAYER-2017-208962

PATIENT
  Sex: Female

DRUGS (1)
  1. MIRENA [Suspect]
     Active Substance: LEVONORGESTREL
     Dosage: 20 MG/24HR, CONT
     Route: 015
     Dates: start: 20170824

REACTIONS (4)
  - Vulvovaginal injury [None]
  - Vaginal haemorrhage [None]
  - Menorrhagia [None]
  - Vaginal infection [Recovered/Resolved]

NARRATIVE: CASE EVENT DATE: 201709
